FAERS Safety Report 13500561 (Version 1)
Quarter: 2017Q2

REPORT INFORMATION
  Report Type: Spontaneous
  Country: US (occurrence: US)
  Receive Date: 20170501
  Receipt Date: 20170501
  Transmission Date: 20170830
  Serious: No
  Sender: FDA-Public Use
  Company Number: US-BAXALTA-2017BLT002431

PATIENT
  Sex: Female

DRUGS (1)
  1. CUVITRU [Suspect]
     Active Substance: HUMAN IMMUNOGLOBULIN G
     Indication: PRIMARY IMMUNODEFICIENCY SYNDROME
     Dosage: 20 G, EVERY 14 DAYS
     Route: 058
     Dates: start: 20161103

REACTIONS (8)
  - Erythema [Unknown]
  - Fatigue [Unknown]
  - Nasal congestion [Unknown]
  - Rash [Unknown]
  - Pyrexia [Unknown]
  - Visual impairment [Unknown]
  - Irritable bowel syndrome [Unknown]
  - Muscle spasms [Unknown]
